FAERS Safety Report 6648860-8 (Version None)
Quarter: 2010Q1

REPORT INFORMATION
  Report Type: 
  Country: None (occurrence: None)
  Receive Date: 20100324
  Receipt Date: 20100318
  Transmission Date: 20100710
  Serious: Yes (Hospitalization, Other)
  Sender: FDA-Public Use
  Company Number: PHEH2009US01249

PATIENT
  Sex: Male

DRUGS (37)
  1. ELIDEL [Suspect]
     Indication: ECZEMA
     Dosage: UNK
     Route: 061
     Dates: start: 20050412
  2. SYNTHROID [Concomitant]
  3. DARVOCET-N 100 [Concomitant]
  4. LYRICA [Concomitant]
  5. ZANAFLEX [Concomitant]
  6. PREVACID [Concomitant]
  7. ENTEX PSE [Concomitant]
  8. MYCOLOG-II CREAM [Concomitant]
  9. ULTRAM [Concomitant]
  10. PHENAZOPYRIDINE HCL TAB [Concomitant]
  11. IBUPROFEN [Concomitant]
  12. RADIATION THERAPY [Concomitant]
     Dosage: UNK
     Dates: end: 20070801
  13. ADRIAMYCIN PFS [Concomitant]
  14. BLEOMYCIN [Concomitant]
  15. VINBLASTINE [Concomitant]
  16. DACARBAZINE [Concomitant]
  17. PIPERACILLIN W/TAZOBACTAM [Concomitant]
  18. MAGNESIUM HYDROXIDE TAB [Concomitant]
  19. ZOLPIDEM [Concomitant]
  20. PROCHLORPERAZINE [Concomitant]
  21. LORAZEPAM [Concomitant]
  22. MORPHINE SULFATE [Concomitant]
  23. DIPHENHYDRAMINE HYDROCHLORIDE [Concomitant]
  24. PROMETHAZINE [Concomitant]
  25. NALOXONE [Concomitant]
  26. HYDROMORPHONE HCL [Concomitant]
  27. ONDANSETRON [Concomitant]
  28. ATIVAN [Concomitant]
  29. PERCOCET [Concomitant]
  30. COMPAZINE [Concomitant]
  31. ALEVE [Concomitant]
  32. COLACE [Concomitant]
  33. NEULASTA [Concomitant]
  34. CIPROFLOXACIN [Concomitant]
  35. CILOXAN [Concomitant]
  36. OXYCODONE HCL [Concomitant]
  37. AMOXICILLIN [Concomitant]

REACTIONS (15)
  - ABDOMINAL HERNIA [None]
  - ABDOMINAL PAIN [None]
  - APPENDICITIS PERFORATED [None]
  - ARTHRALGIA [None]
  - DERMATITIS CONTACT [None]
  - DYSPHAGIA [None]
  - HODGKIN'S DISEASE [None]
  - INJURY [None]
  - INTERVERTEBRAL DISC DEGENERATION [None]
  - INTERVERTEBRAL DISC PROTRUSION [None]
  - KYPHOSIS [None]
  - NEUROENDOCRINE CARCINOMA [None]
  - PAIN [None]
  - POST PROCEDURAL HYPOTHYROIDISM [None]
  - SCOLIOSIS [None]
